FAERS Safety Report 9090296 (Version 1)
Quarter: 2013Q1

REPORT INFORMATION
  Report Type: Spontaneous
  Country: US (occurrence: US)
  Receive Date: 20130131
  Receipt Date: 20130131
  Transmission Date: 20140127
  Serious: Yes (Other)
  Sender: FDA-Public Use
  Company Number: US-009507513-1301USA014237

PATIENT
  Sex: Female

DRUGS (8)
  1. SINGULAIR [Suspect]
  2. NALTREXONE [Concomitant]
  3. ESCITALOPRAM [Concomitant]
  4. HYDROXYZINE [Concomitant]
  5. GABAPENTIN [Concomitant]
  6. NORTRIPTYLINE [Concomitant]
  7. TRAZODONE HYDROCHLORIDE [Concomitant]
  8. FEXOFENADINE HYDROCHLORIDE [Concomitant]

REACTIONS (1)
  - Suicide attempt [Unknown]
